FAERS Safety Report 8814122 (Version 1)
Quarter: 2012Q4

REPORT INFORMATION
  Report Type: 
  Country: BR (occurrence: BR)
  Receive Date: 20120928
  Receipt Date: 20120928
  Transmission Date: 20130627
  Serious: Yes (Hospitalization, Disabling)
  Sender: FDA-Public Use
  Company Number: BR-SANOFI-AVENTIS-2012SA068807

PATIENT
  Age: 88 Year
  Sex: Female
  Weight: 54 kg

DRUGS (9)
  1. LANTUS [Suspect]
     Indication: TYPE 2 DIABETES MELLITUS
     Dosage: form- vial
     Route: 058
     Dates: start: 2009
  2. ALDACTONE [Concomitant]
     Indication: HEART DISORDER
     Route: 048
  3. CALCIUM [Concomitant]
     Indication: OSTEOPOROSIS
     Route: 048
  4. DEFLAZACORT [Concomitant]
     Indication: ARTHRITIS
     Route: 048
  5. DIAMICRON MR [Concomitant]
     Indication: TYPE 2 DIABETES MELLITUS
     Route: 048
  6. HIDANTAL [Concomitant]
     Indication: NEUROLOGICAL DISORDER NOS
     Route: 048
  7. OMEPRAZOLE [Concomitant]
     Indication: GASTRIC DISORDER
     Route: 048
  8. PROPAFENONE HYDROCHLORIDE [Concomitant]
     Indication: HEART DISORDER
     Route: 048
  9. RIVOTRIL [Concomitant]
     Indication: NEUROLOGICAL DISORDER NOS
     Route: 048

REACTIONS (5)
  - Myocardial infarction [Unknown]
  - Cerebrovascular accident [Recovered/Resolved with Sequelae]
  - Paralysis [Unknown]
  - Urinary tract infection [Unknown]
  - Lung infection [Unknown]
